FAERS Safety Report 21312444 (Version 1)
Quarter: 2022Q3

REPORT INFORMATION
  Report Type: Spontaneous
  Country: US (occurrence: None)
  Receive Date: 20220909
  Receipt Date: 20220909
  Transmission Date: 20221027
  Serious: No
  Sender: FDA-Public Use
  Company Number: US-ARIS GLOBAL-202206-1060

PATIENT
  Sex: Female
  Weight: 73.003 kg

DRUGS (26)
  1. OXERVATE [Suspect]
     Active Substance: CENEGERMIN-BKBJ
     Indication: Neurotrophic keratopathy
     Route: 047
     Dates: start: 20220525
  2. VITAMINS [Concomitant]
     Active Substance: VITAMINS
  3. FISH OIL [Concomitant]
     Active Substance: FISH OIL
  4. VITAMIN B COMPLEX [Concomitant]
     Active Substance: CYANOCOBALAMIN\DEXPANTHENOL\NIACINAMIDE\PYRIDOXINE HYDROCHLORIDE\RIBOFLAVIN 5^-PHOSPHATE SODIUM\THIA
  5. VENLAFAXINE HCL [Concomitant]
     Active Substance: VENLAFAXINE HYDROCHLORIDE
  6. TRAVOPROST [Concomitant]
     Active Substance: TRAVOPROST
  7. TIMOLOL MALEATE [Concomitant]
     Active Substance: TIMOLOL MALEATE
  8. SERTRALINE HYDROCHLORIDE [Concomitant]
     Active Substance: SERTRALINE HYDROCHLORIDE
  9. QUINAPRIL [Concomitant]
     Active Substance: QUINAPRIL
  10. OMEPRAZOLE [Concomitant]
     Active Substance: OMEPRAZOLE
  11. NITROGLYCERIN [Concomitant]
     Active Substance: NITROGLYCERIN
  12. METOPROLOL SUCCINATE [Concomitant]
     Active Substance: METOPROLOL SUCCINATE
  13. LORAZEPAM [Concomitant]
     Active Substance: LORAZEPAM
  14. LEVOTHYROXINE [Concomitant]
     Active Substance: LEVOTHYROXINE
  15. NOVOLIN NOS [Concomitant]
     Active Substance: INSULIN HUMAN
     Dosage: 70-30 70-30/ML VIAL
  16. GLUCAGON HCL [Concomitant]
     Dosage: 1 MG/ML VIAL
  17. NOVOLOG [Concomitant]
     Active Substance: INSULIN ASPART
     Dosage: FLEXPEN
  18. FUROSEMIDE [Concomitant]
     Active Substance: FUROSEMIDE
  19. FLUOROMETHOLONE [Concomitant]
     Active Substance: FLUOROMETHOLONE
     Dosage: DROPS SUSPENSION
  20. FELODIPINE [Concomitant]
     Active Substance: FELODIPINE
     Dosage: EXTENDED RELEASE FOR 24 HOURS
  21. FAMOTIDINE [Concomitant]
     Active Substance: FAMOTIDINE
  22. BRIMONIDINE TARTRATE [Concomitant]
     Active Substance: BRIMONIDINE TARTRATE
  23. AZOPT [Concomitant]
     Active Substance: BRINZOLAMIDE
     Dosage: DROPS SUSPENSION
  24. ATORVASTATIN CALCIUM [Concomitant]
     Active Substance: ATORVASTATIN CALCIUM
  25. ASPIRIN [Concomitant]
     Active Substance: ASPIRIN
  26. ARTIFICIAL TEARS [Concomitant]
     Active Substance: GLYCERIN\HYPROMELLOSES\POLYETHYLENE GLYCOL 400
     Dosage: 0.1%-0.3%

REACTIONS (3)
  - Device difficult to use [Unknown]
  - Eye pain [Recovering/Resolving]
  - Eye swelling [Unknown]
